FAERS Safety Report 4696314-0 (Version None)
Quarter: 2005Q2

REPORT INFORMATION
  Report Type: 
  Country: None (occurrence: None)
  Receive Date: 20050621
  Receipt Date: 20050610
  Transmission Date: 20051028
  Serious: Yes (Other)
  Sender: FDA-Public Use
  Company Number: PHEH2005US06604

PATIENT
  Sex: Female

DRUGS (1)
  1. ZOMETA [Suspect]
     Indication: BREAST CANCER METASTATIC
     Dosage: 4MG UNK
     Dates: start: 20050401, end: 20050501

REACTIONS (3)
  - IMPAIRED HEALING [None]
  - PAIN IN JAW [None]
  - POST PROCEDURAL DRAINAGE [None]
